FAERS Safety Report 9836098 (Version 4)
Quarter: 2014Q1

REPORT INFORMATION
  Report Type: Report from Study
  Country: ES (occurrence: ES)
  Receive Date: 20140123
  Receipt Date: 20140214
  Transmission Date: 20141002
  Serious: Yes (Death, Hospitalization)
  Sender: FDA-Public Use
  Company Number: ES-AMGEN-ESPCT2014004357

PATIENT
  Age: 71 Year
  Sex: Male
  Weight: 75 kg

DRUGS (8)
  1. PANITUMUMAB [Suspect]
     Indication: HEAD AND NECK CANCER
     Dosage: 462 MG, Q2WK
     Route: 042
     Dates: start: 20131224, end: 20140108
  2. PACLITAXEL [Concomitant]
     Dosage: 135 MG, QWK
     Route: 042
     Dates: start: 20131224, end: 20140115
  3. CITALOPRAM [Concomitant]
     Dosage: 20 MG, QD
     Route: 048
  4. CLOPIDOGREL [Concomitant]
     Dosage: 75 MG, QD
     Route: 048
  5. SIMVASTATIN [Concomitant]
     Dosage: 40 MG, QD
     Route: 048
  6. EMCONCOR [Concomitant]
     Dosage: 2.5 MG, QD
     Route: 048
  7. PROCORALAN [Concomitant]
     Dosage: 10 MG, QD
     Route: 048
  8. FORTASEC                           /00384301/ [Concomitant]
     Dosage: UPTO SIX TABLETS A DAY

REACTIONS (1)
  - Febrile neutropenia [Fatal]
